FAERS Safety Report 9526520 (Version 1)
Quarter: 2013Q3

REPORT INFORMATION
  Report Type: Report from Study
  Country: BE (occurrence: BE)
  Receive Date: 20130916
  Receipt Date: 20130916
  Transmission Date: 20140515
  Serious: Yes (Hospitalization)
  Sender: FDA-Public Use
  Company Number: BE-AMGEN-BELCT2013064120

PATIENT
  Age: 55 Year
  Sex: Female
  Weight: 66 kg

DRUGS (7)
  1. ETANERCEPT [Suspect]
     Indication: RHEUMATOID ARTHRITIS
     Dosage: 25 MG, 2 TIMES/WK
     Route: 058
     Dates: start: 20020612, end: 20040701
  2. ALENDRONATE SODIUM [Concomitant]
     Dosage: UNK
     Route: 048
     Dates: start: 20031128
  3. ALPRAZOLAM [Concomitant]
     Dosage: UNK
     Route: 048
     Dates: start: 20020904
  4. AMITRIPTYLINE [Concomitant]
     Dosage: UNK
     Route: 048
     Dates: start: 20010307
  5. CALCIUM CARBONATE [Concomitant]
     Dosage: UNK
     Route: 048
     Dates: start: 20040921
  6. MEDROL                             /00049601/ [Concomitant]
     Dosage: 4 MG,
     Route: 065
     Dates: start: 20010625, end: 20030704
  7. MEDROL                             /00049601/ [Concomitant]
     Dosage: 2 MG,
     Route: 065
     Dates: start: 20030704, end: 20040701

REACTIONS (2)
  - Autoimmune hepatitis [Recovered/Resolved]
  - Cholangitis chronic [Recovered/Resolved]
